FAERS Safety Report 6464171-8 (Version None)
Quarter: 2009Q4

REPORT INFORMATION
  Report Type: 
  Country: None (occurrence: None)
  Receive Date: 20091201
  Receipt Date: 20091117
  Transmission Date: 20100525
  Serious: Yes (Other)
  Sender: FDA-Public Use
  Company Number: US-ROCHE-662605

PATIENT
  Sex: Female
  Weight: 88.2 kg

DRUGS (7)
  1. PEGASYS [Suspect]
     Indication: HEPATITIS C
     Dosage: FORM:PFS
     Route: 058
     Dates: start: 20080518, end: 20090401
  2. COPEGUS [Suspect]
     Indication: HEPATITIS C
     Dosage: DIVIDED DOSES
     Route: 048
     Dates: start: 20080518, end: 20090401
  3. PREDNISONE TAB [Concomitant]
     Indication: ASTHMA
     Dosage: TAKEN EVERY OTHER DAY
  4. MEDROL [Concomitant]
     Dates: start: 19740101
  5. HUMULIN R [Concomitant]
  6. AVANDAMET [Concomitant]
  7. LANTUS [Concomitant]

REACTIONS (14)
  - ABDOMINAL PAIN UPPER [None]
  - FATIGUE [None]
  - FOOD INTOLERANCE [None]
  - INCREASED INSULIN REQUIREMENT [None]
  - JOINT SWELLING [None]
  - MUSCLE SPASMS [None]
  - MUSCULAR WEAKNESS [None]
  - NAUSEA [None]
  - PAIN IN EXTREMITY [None]
  - RENAL CYST [None]
  - STRESS FRACTURE [None]
  - TRIGGER FINGER [None]
  - WEIGHT DECREASED [None]
  - WEIGHT INCREASED [None]
